FAERS Safety Report 10210443 (Version 1)
Quarter: 2014Q2

REPORT INFORMATION
  Report Type: Spontaneous
  Country: US (occurrence: US)
  Receive Date: 20140602
  Receipt Date: 20140602
  Transmission Date: 20141212
  Serious: Yes (Hospitalization, Other)
  Sender: FDA-Public Use
  Company Number: US-UCBSA-122467

PATIENT
  Age: 67 Year
  Sex: Male

DRUGS (6)
  1. NEUPRO [Suspect]
     Indication: PARKINSON^S DISEASE
     Dosage: UNKNOWN DOSE AND FREQUENCY
  2. NEUPRO [Suspect]
     Dosage: UNKNOWN DOSE AND FREQUENCY
  3. MORPHINE [Concomitant]
     Dates: start: 201405, end: 201405
  4. MORPHINE [Concomitant]
     Dates: start: 201405, end: 201405
  5. DEMEROL [Concomitant]
     Dates: start: 201405, end: 201405
  6. DEMEROL [Concomitant]
     Dates: start: 201405, end: 201405

REACTIONS (3)
  - Pancreatitis acute [Unknown]
  - Hallucination [Not Recovered/Not Resolved]
  - Delirium [Not Recovered/Not Resolved]
